FAERS Safety Report 5567662-7 (Version None)
Quarter: 2007Q4

REPORT INFORMATION
  Report Type: 
  Country: None (occurrence: None)
  Receive Date: 20071217
  Receipt Date: 20070831
  Transmission Date: 20080405
  Serious: No
  Sender: FDA-Public Use
  Company Number: 07-224

PATIENT
  Age: 48 Year
  Sex: Female
  Weight: 86.1834 kg

DRUGS (7)
  1. CLONAZEPAM [Suspect]
     Indication: ANXIETY
     Dosage: 2 TABLETS DAILY
     Dates: start: 20020101, end: 20070829
  2. EFFEXOR XR [Concomitant]
  3. WELLBUTRIN XR (GEQ) [Concomitant]
  4. RISPERIDONE [Concomitant]
  5. TRICOR [Concomitant]
  6. COGENTIN [Concomitant]
  7. SYNTHROID [Concomitant]

REACTIONS (5)
  - CAUSTIC INJURY [None]
  - DRUG INEFFECTIVE [None]
  - HYPOAESTHESIA ORAL [None]
  - INTENTIONAL DRUG MISUSE [None]
  - TONGUE DISORDER [None]
